FAERS Safety Report 5304392-0 (Version None)
Quarter: 2007Q2

REPORT INFORMATION
  Report Type: 
  Country: None (occurrence: None)
  Receive Date: 20070423
  Receipt Date: 20070418
  Transmission Date: 20071010
  Serious: Yes (Other)
  Sender: FDA-Public Use
  Company Number: DE-AVENTIS-200711039DE

PATIENT
  Age: 65 Year
  Sex: Female

DRUGS (1)
  1. CLEXANE [Suspect]
     Indication: SURGERY
     Dosage: DOSE: NOT REPORTED
     Dates: start: 20070416

REACTIONS (1)
  - CONVULSION [None]
